FAERS Safety Report 23109634 (Version 1)
Quarter: 2023Q4

REPORT INFORMATION
  Report Type: Other
  Country: None (occurrence: US)
  Receive Date: 20231026
  Receipt Date: 20231026
  Transmission Date: 20240109
  Serious: Yes (Hospitalization, Other)
  Sender: FDA-Public Use
  Company Number: US-Renata Limited-2147492

PATIENT
  Age: 35 Year
  Sex: Male

DRUGS (5)
  1. RISPERIDONE [Suspect]
     Active Substance: RISPERIDONE
     Indication: Psychotic disorder
     Route: 048
  2. HALOPERIDOL DECANOATE [Suspect]
     Active Substance: HALOPERIDOL DECANOATE
     Route: 030
  3. VALPROIC ACID [Concomitant]
     Active Substance: VALPROIC ACID
     Route: 065
  4. DIPHENHYDRAMINE [Concomitant]
     Active Substance: DIPHENHYDRAMINE
     Route: 030
  5. PERMETHRIN [Concomitant]
     Active Substance: PERMETHRIN
     Route: 065

REACTIONS (1)
  - Catatonia [Recovering/Resolving]
